FAERS Safety Report 10749859 (Version 5)
Quarter: 2015Q3

REPORT INFORMATION
  Report Type: Report from Study
  Country: CN (occurrence: CN)
  Receive Date: 20150129
  Receipt Date: 20150708
  Transmission Date: 20151125
  Serious: Yes (Life-Threatening, Hospitalization)
  Sender: FDA-Public Use
  Company Number: CN-CELGENE-035-AB007-14063185

PATIENT
  Age: 44 Year
  Sex: Male
  Weight: 64 kg

DRUGS (14)
  1. ABRAXANE [Suspect]
     Active Substance: PACLITAXEL
     Indication: PANCREATIC CARCINOMA METASTATIC
     Route: 041
     Dates: start: 20140307, end: 20140307
  2. GEMCITABINE [Suspect]
     Active Substance: GEMCITABINE\GEMCITABINE HYDROCHLORIDE
     Route: 041
     Dates: start: 20140701, end: 20140701
  3. GEMCITABINE [Suspect]
     Active Substance: GEMCITABINE\GEMCITABINE HYDROCHLORIDE
     Route: 041
     Dates: end: 20140613
  4. GEMCITABINE [Suspect]
     Active Substance: GEMCITABINE\GEMCITABINE HYDROCHLORIDE
     Dosage: 1
     Route: 041
     Dates: start: 20140618
  5. ABRAXANE [Suspect]
     Active Substance: PACLITAXEL
     Route: 041
     Dates: end: 20140701
  6. ADRENOBAZONUM [Concomitant]
     Indication: HAEMORRHAGE
     Route: 048
     Dates: start: 20140722, end: 20140724
  7. HEMOCOAGULASE [Concomitant]
     Indication: HAEMORRHAGE
     Dosage: KU
     Route: 030
     Dates: start: 20140722, end: 20140724
  8. ETAMSYLATE [Concomitant]
     Active Substance: ETHAMSYLATE
     Indication: HAEMORRHAGE
     Route: 041
     Dates: start: 20140722, end: 20140724
  9. ABRAXANE [Suspect]
     Active Substance: PACLITAXEL
     Route: 041
     Dates: start: 20140606, end: 20140606
  10. GEMCITABINE [Suspect]
     Active Substance: GEMCITABINE\GEMCITABINE HYDROCHLORIDE
     Indication: PANCREATIC CARCINOMA METASTATIC
     Route: 041
     Dates: start: 20140307, end: 20140307
  11. GEMCITABINE [Suspect]
     Active Substance: GEMCITABINE\GEMCITABINE HYDROCHLORIDE
     Dosage: 15 MILLIGRAM
     Route: 041
     Dates: start: 20140606, end: 20140606
  12. SOMATOSTATIN [Concomitant]
     Active Substance: SOMATOSTATIN
     Indication: HAEMORRHAGE
     Route: 065
     Dates: start: 20140722, end: 20140724
  13. ABRAXANE [Suspect]
     Active Substance: PACLITAXEL
     Route: 041
     Dates: start: 20140618
  14. ABRAXANE [Suspect]
     Active Substance: PACLITAXEL
     Route: 041
     Dates: end: 20140613

REACTIONS (2)
  - Anaemia [Recovered/Resolved]
  - Anaemia [Not Recovered/Not Resolved]

NARRATIVE: CASE EVENT DATE: 20140605
